FAERS Safety Report 9805780 (Version 1)
Quarter: 2014Q1

REPORT INFORMATION
  Report Type: Spontaneous
  Country: US (occurrence: US)
  Receive Date: 20140109
  Receipt Date: 20140109
  Transmission Date: 20141002
  Serious: Yes (Death)
  Sender: FDA-Public Use
  Company Number: US-PFIZER INC-2014006292

PATIENT
  Age: 50 Year
  Sex: Female

DRUGS (7)
  1. PREGABALIN [Suspect]
     Dosage: UNK
     Route: 048
  2. ESTROGENS CONJUGATED [Suspect]
     Dosage: UNK
     Route: 048
  3. CITALOPRAM [Suspect]
     Dosage: UNK
     Route: 048
  4. ACETAMINOPHEN [Suspect]
     Dosage: UNK
     Route: 048
  5. LISINOPRIL [Suspect]
     Dosage: UNK
     Route: 048
  6. TRAMADOL [Suspect]
     Dosage: UNK
     Route: 048
  7. DICLOFENAC [Suspect]
     Dosage: UNK
     Route: 048

REACTIONS (3)
  - Completed suicide [Fatal]
  - Cardiac arrest [Fatal]
  - Respiratory arrest [Fatal]
